FAERS Safety Report 4338895-2 (Version None)
Quarter: 2004Q2

REPORT INFORMATION
  Report Type: 
  Country: None (occurrence: None)
  Receive Date: 20040409
  Receipt Date: 20040401
  Transmission Date: 20050107
  Serious: Yes (Hospitalization)
  Sender: FDA-Public Use
  Company Number: 2004207326FR

PATIENT
  Age: 90 Year
  Sex: Female

DRUGS (5)
  1. XANAX [Suspect]
     Dosage: 0.5 MG, QD, ORAL
     Route: 048
  2. MEPRONIZINE (ACEPROMETAZINE, MEPROBAMATE) [Suspect]
     Dosage: 1 DF, QD, ORAL
     Route: 048
  3. LASIX [Suspect]
     Dosage: 40 MG, QD, ORAL
     Route: 048
  4. VALIUM [Suspect]
     Dosage: 15 DF, ORAL
     Route: 048
  5. INSULIN [Concomitant]

REACTIONS (6)
  - DEHYDRATION [None]
  - DEPRESSED LEVEL OF CONSCIOUSNESS [None]
  - HYPOGLYCAEMIA [None]
  - MARKEDLY REDUCED DIETARY INTAKE [None]
  - RENAL FAILURE CHRONIC [None]
  - SOMNOLENCE [None]
